FAERS Safety Report 7972930-5 (Version None)
Quarter: 2011Q4

REPORT INFORMATION
  Report Type: 
  Country: None (occurrence: None)
  Receive Date: 20111122
  Receipt Date: 20110720
  Transmission Date: 20120403
  Serious: No
  Sender: FDA-Public Use
  Company Number: PHHY2011US58180

PATIENT
  Age: 53 Year
  Sex: Female

DRUGS (5)
  1. GILENYA [Suspect]
     Indication: MULTIPLE SCLEROSIS
     Dosage: 0.5 MG, DAILY, ORAL
     Route: 048
     Dates: start: 20110624
  2. LEVOXYL [Concomitant]
  3. CYMBALTA [Concomitant]
  4. SPIRIVA [Concomitant]
  5. METHADONE HCL [Concomitant]

REACTIONS (4)
  - ASTHENIA [None]
  - FATIGUE [None]
  - BLOOD PRESSURE DECREASED [None]
  - ALOPECIA [None]
